FAERS Safety Report 14368526 (Version 1)
Quarter: 2018Q1

REPORT INFORMATION
  Report Type: Report from Study
  Country: US (occurrence: US)
  Receive Date: 20180109
  Receipt Date: 20180109
  Transmission Date: 20180509
  Serious: Yes (Hospitalization)
  Sender: FDA-Public Use
  Company Number: US-ACTELION-A-NJ2017-155082

PATIENT
  Age: 77 Year
  Sex: Female

DRUGS (3)
  1. ADCIRCA [Concomitant]
     Active Substance: TADALAFIL
  2. TRACLEER [Suspect]
     Active Substance: BOSENTAN
     Indication: PULMONARY ARTERIAL HYPERTENSION
     Dosage: 62.5 MG, BID
     Route: 048
  3. AMLODIPINE [Concomitant]
     Active Substance: AMLODIPINE BESYLATE

REACTIONS (16)
  - Depressed mood [Unknown]
  - Balance disorder [Unknown]
  - Sleep attacks [Unknown]
  - Palpitations [Unknown]
  - Unevaluable event [Unknown]
  - Fatigue [Unknown]
  - Amnesia [Unknown]
  - Cough [Unknown]
  - Nasal congestion [Unknown]
  - Dyspnoea [Unknown]
  - Condition aggravated [Unknown]
  - Vomiting [Unknown]
  - Productive cough [Unknown]
  - Feeling abnormal [Unknown]
  - Decreased activity [Unknown]
  - Dizziness [Unknown]
